FAERS Safety Report 4563971-9 (Version None)
Quarter: 2005Q1

REPORT INFORMATION
  Report Type: 
  Country: None (occurrence: None)
  Receive Date: 20050128
  Receipt Date: 20050113
  Transmission Date: 20050727
  Serious: Yes (Hospitalization)
  Sender: FDA-Public Use
  Company Number: JP-JNJFOC-20041206674

PATIENT
  Sex: Male

DRUGS (4)
  1. ITRIZOLE [Suspect]
     Indication: ONYCHOMYCOSIS
     Route: 049
  2. LAFUTIDINE [Suspect]
     Indication: GASTRIC ULCER
     Route: 049
  3. REBAMIPIDE [Suspect]
     Indication: GASTRIC ULCER
     Route: 049
  4. ETODOLAC [Concomitant]
     Route: 049

REACTIONS (1)
  - ERYTHEMA MULTIFORME [None]
